FAERS Safety Report 6895462-4 (Version None)
Quarter: 2010Q3

REPORT INFORMATION
  Report Type: 
  Country: None (occurrence: None)
  Receive Date: 20100802
  Receipt Date: 20100728
  Transmission Date: 20110219
  Serious: Yes (Hospitalization, Other)
  Sender: FDA-Public Use
  Company Number: US-BRISTOL-MYERS SQUIBB COMPANY-15141674

PATIENT
  Age: 64 Year
  Sex: Male
  Weight: 51 kg

DRUGS (20)
  1. PACLITAXEL [Suspect]
     Indication: NON-SMALL CELL LUNG CANCER
     Dates: start: 20100128, end: 20100513
  2. CARBOPLATIN [Suspect]
     Indication: NON-SMALL CELL LUNG CANCER
     Dates: start: 20100128, end: 20100513
  3. DIPHENHYDRAMINE HCL [Concomitant]
     Indication: INSOMNIA
     Route: 048
     Dates: start: 20100115
  4. DOCUSATE SODIUM [Concomitant]
     Indication: CONSTIPATION
     Dosage: 1 DF - 100-200MG
     Dates: start: 20100120
  5. SIMVASTATIN [Concomitant]
     Indication: HYPERCHOLESTEROLAEMIA
     Dates: start: 20090101
  6. SALBUTAMOL [Concomitant]
     Indication: DYSPNOEA
     Dosage: 2 DF - 2PUFFS
     Dates: start: 20100110
  7. SALBUTAMOL [Concomitant]
     Indication: COUGH
     Dosage: 2 DF - 2PUFFS
     Dates: start: 20100110
  8. SALBUTAMOL [Concomitant]
     Dosage: 2 DF - 2PUFFS
     Dates: start: 20100110
  9. TYLOX [Concomitant]
     Indication: PAIN
     Dosage: 1 DF - 5/325MG
     Dates: start: 20100121
  10. OXYCODONE HCL [Concomitant]
     Indication: PAIN
     Dates: start: 20100211
  11. MACROGOL [Concomitant]
     Indication: CONSTIPATION
     Dates: start: 20100217
  12. ALLOPURINOL [Concomitant]
     Indication: HYPERURICAEMIA
     Dates: start: 20100224
  13. SERTRALINE HYDROCHLORIDE [Concomitant]
     Indication: DEPRESSION
     Dates: start: 20100224
  14. LORATADINE [Concomitant]
     Indication: RHINITIS
     Dates: start: 20100311
  15. MEGESTROL ACETATE [Concomitant]
     Indication: DECREASED APPETITE
     Dates: start: 20100310
  16. NEUTRAPHOS [Concomitant]
     Indication: BLOOD PHOSPHORUS DECREASED
     Dosage: 1 DF - 1TABLET
     Dates: start: 20100310
  17. POTASSIUM [Concomitant]
     Indication: BLOOD POTASSIUM DECREASED
     Dates: start: 20100310
  18. MAGNESIUM OXIDE [Concomitant]
     Indication: BLOOD MAGNESIUM DECREASED
     Dates: start: 20100310
  19. PREDNISONE [Concomitant]
     Indication: DECREASED APPETITE
     Dates: start: 20100421
  20. PROCHLORPERAZINE EDISYLATE [Concomitant]
     Indication: NAUSEA
     Dates: start: 20100421

REACTIONS (18)
  - BLOOD POTASSIUM DECREASED [None]
  - CANDIDIASIS [None]
  - CONSTIPATION [None]
  - FAILURE TO THRIVE [None]
  - FLUID INTAKE REDUCED [None]
  - HAEMATOCRIT DECREASED [None]
  - HAEMOGLOBIN DECREASED [None]
  - HEART RATE INCREASED [None]
  - HYPOPHAGIA [None]
  - INSOMNIA [None]
  - LACTIC ACIDOSIS [None]
  - LUNG DISORDER [None]
  - PALLOR [None]
  - PERICARDIAL EFFUSION [None]
  - PLATELET COUNT DECREASED [None]
  - PNEUMONIA [None]
  - PNEUMOTHORAX [None]
  - WHITE BLOOD CELL COUNT INCREASED [None]
